FAERS Safety Report 9113867 (Version 1)
Quarter: 2013Q1

REPORT INFORMATION
  Report Type: Report from Study
  Country: JP (occurrence: JP)
  Receive Date: 20130208
  Receipt Date: 20130208
  Transmission Date: 20140127
  Serious: Yes (Death, Hospitalization)
  Sender: FDA-Public Use
  Company Number: JP-AMGEN-JPNCT2013009368

PATIENT
  Age: 80 Year
  Sex: Male
  Weight: 58 kg

DRUGS (10)
  1. DARBEPOETIN ALFA [Suspect]
     Indication: NEPHROGENIC ANAEMIA
     Dosage: 30 MUG, Q4WK
     Route: 040
     Dates: start: 20111122, end: 20120508
  2. DARBEPOETIN ALFA [Suspect]
     Dosage: 30 MUG, Q2WK
     Route: 040
     Dates: start: 20120608, end: 20120622
  3. DARBEPOETIN ALFA [Suspect]
     Dosage: 60 MUG, Q2WK
     Route: 040
     Dates: start: 20120718, end: 20120803
  4. DARBEPOETIN ALFA [Suspect]
     Dosage: 60 MUG, Q4WK
     Route: 040
     Dates: start: 20120821, end: 20120918
  5. NORVASC [Concomitant]
     Dosage: UNK
     Route: 048
  6. PREMINENT [Concomitant]
     Dosage: UNK
     Route: 048
  7. FERROMIA [Concomitant]
     Dosage: UNK
     Route: 048
  8. LASIX [Concomitant]
     Indication: NEPHROSCLEROSIS
     Dosage: UNK
     Route: 048
  9. ZYLORIC [Concomitant]
     Dosage: UNK
     Route: 048
  10. KREMEZIN [Concomitant]
     Indication: NEPHROSCLEROSIS
     Dosage: UNK
     Route: 048

REACTIONS (2)
  - Death [Fatal]
  - Renal failure chronic [Recovering/Resolving]
